FAERS Safety Report 11883444 (Version 6)
Quarter: 2017Q1

REPORT INFORMATION
  Report Type: Report from Study
  Country: US (occurrence: US)
  Receive Date: 20151231
  Receipt Date: 20170228
  Transmission Date: 20170428
  Serious: Yes (Other)
  Sender: FDA-Public Use
  Company Number: US-ACTELION-A-NJ2015-129254

PATIENT
  Age: 67 Year
  Sex: Female
  Weight: 88.89 kg

DRUGS (4)
  1. WARFARIN [Concomitant]
     Active Substance: WARFARIN
  2. UPTRAVI [Concomitant]
     Active Substance: SELEXIPAG
     Indication: PULMONARY HYPERTENSION
     Route: 048
  3. OPSUMIT [Suspect]
     Active Substance: MACITENTAN
     Indication: PULMONARY HYPERTENSION
     Dosage: 10 MG, QD
     Route: 048
     Dates: start: 20151130, end: 20170112
  4. ADEMPAS [Concomitant]
     Active Substance: RIOCIGUAT

REACTIONS (11)
  - Mineral supplementation [Unknown]
  - Haemoglobin decreased [Unknown]
  - Transfusion [Unknown]
  - Mastitis [Unknown]
  - Blood pressure decreased [Unknown]
  - Influenza [Unknown]
  - Rash [Unknown]
  - Breast cancer [Unknown]
  - Anaemia [Unknown]
  - Dyspnoea [Unknown]
  - Oedema peripheral [Unknown]
